FAERS Safety Report 22131592 (Version 1)
Quarter: 2023Q1

REPORT INFORMATION
  Report Type: Spontaneous
  Country: SA (occurrence: SA)
  Receive Date: 20230323
  Receipt Date: 20230323
  Transmission Date: 20230417
  Serious: Yes (Other)
  Sender: FDA-Public Use
  Company Number: SA-KI BIOPHARMA, LLC-2023KAM00005

PATIENT
  Age: 29 Year
  Sex: Male

DRUGS (2)
  1. CYTOMEGALOVIRUS IMMUNE GLOBULIN INTRAVENOUS (HUMAN) [Suspect]
     Active Substance: CYTOMEGALOVIRUS IMMUNE GLOBULIN INTRAVENOUS (HUMAN)
     Indication: Cytomegalovirus infection
     Dosage: UNK
  2. GANCICLOVIR [Concomitant]
     Active Substance: GANCICLOVIR
     Indication: Cytomegalovirus infection
     Dosage: 5 MG/KG; EVERY 12 HOURS

REACTIONS (1)
  - Drug ineffective for unapproved indication [Not Recovered/Not Resolved]
